FAERS Safety Report 5776013-4 (Version None)
Quarter: 2008Q2

REPORT INFORMATION
  Report Type: 
  Country: None (occurrence: None)
  Receive Date: 20080613
  Receipt Date: 20080602
  Transmission Date: 20081010
  Serious: Yes (Death, Hospitalization, Other)
  Sender: FDA-Public Use
  Company Number: A-US2004-06415

PATIENT
  Age: 25 Year
  Sex: Female
  Weight: 64.5 kg

DRUGS (15)
  1. TRACLEER [Suspect]
     Indication: PULMONARY ARTERIAL HYPERTENSION
     Dosage: 125 MG, BID, ORAL, 125 MG, BID, OTHER
     Route: 048
     Dates: start: 20030922, end: 20040501
  2. TRACLEER [Suspect]
     Indication: PULMONARY ARTERIAL HYPERTENSION
     Dosage: 125 MG, BID, ORAL, 125 MG, BID, OTHER
     Route: 048
     Dates: start: 20040603, end: 20040718
  3. FLOLAN [Concomitant]
  4. COUMADIN [Concomitant]
  5. PROTONIX [Concomitant]
  6. ZOLOFT [Concomitant]
  7. PHENERGAN HCL [Concomitant]
  8. LOPERAMIDE [Concomitant]
  9. ACETAMINOPHEN [Concomitant]
  10. PAXIL [Concomitant]
  11. KEFLEX [Concomitant]
  12. DOPAMINE HCL [Concomitant]
  13. ALESSE [Concomitant]
  14. FUROSEMIDE (FUROSEMIDE SODIUM) [Concomitant]
  15. BENADRYL [Concomitant]

REACTIONS (18)
  - ANXIETY [None]
  - ARTERIOSCLEROSIS [None]
  - CATHETER SITE DISCHARGE [None]
  - CATHETER SITE INFECTION [None]
  - CHEST DISCOMFORT [None]
  - DIARRHOEA [None]
  - DRUG EXPOSURE DURING PREGNANCY [None]
  - FATIGUE [None]
  - HYPOTENSION [None]
  - PAIN IN JAW [None]
  - PREGNANCY [None]
  - PREGNANCY ON ORAL CONTRACEPTIVE [None]
  - PREMATURE SEPARATION OF PLACENTA [None]
  - PULMONARY HYPERTENSION [None]
  - PYREXIA [None]
  - SEPTIC EMBOLUS [None]
  - STAPHYLOCOCCAL SEPSIS [None]
  - SYNCOPE [None]
